FAERS Safety Report 9057316 (Version 1)
Quarter: 2013Q1

REPORT INFORMATION
  Report Type: Spontaneous
  Country: FR (occurrence: FR)
  Receive Date: 20130131
  Receipt Date: 20130131
  Transmission Date: 20140127
  Serious: Yes (Death, Hospitalization, Other)
  Sender: FDA-Public Use
  Company Number: FR-ELI_LILLY_AND_COMPANY-FR201209002716

PATIENT
  Age: 51 None
  Sex: Female

DRUGS (10)
  1. ALIMTA [Suspect]
     Indication: LUNG ADENOCARCINOMA STAGE IV
     Dosage: 1000 MG, UNKNOWN
     Route: 042
     Dates: start: 201111, end: 20120731
  2. AVASTIN [Concomitant]
     Indication: LUNG ADENOCARCINOMA STAGE IV
     Dosage: 650 MG, UNKNOWN
     Route: 065
     Dates: start: 201111, end: 20120731
  3. TRUVADA [Concomitant]
     Dosage: UNK, UNKNOWN
     Route: 065
  4. PREZISTA [Concomitant]
     Dosage: UNK, UNKNOWN
     Route: 065
  5. NORVIR [Concomitant]
     Dosage: UNK, UNKNOWN
     Route: 065
  6. VITAMIN B12 [Concomitant]
     Dosage: UNK, UNKNOWN
     Route: 065
  7. KIVEXA [Concomitant]
     Dosage: UNK, UNKNOWN
     Route: 065
  8. INNOHEP [Concomitant]
     Dosage: UNK UNK, UNKNOWN
     Route: 065
  9. DOLIPRANE [Concomitant]
     Dosage: UNK, UNKNOWN
     Route: 065
  10. IMOVANE [Concomitant]
     Dosage: UNK, UNKNOWN
     Route: 065

REACTIONS (7)
  - Death [Fatal]
  - Febrile bone marrow aplasia [Recovered/Resolved]
  - Anaemia [Not Recovered/Not Resolved]
  - Thrombocytopenia [Not Recovered/Not Resolved]
  - Mucosal inflammation [Unknown]
  - Pulmonary embolism [Unknown]
  - Disease progression [Unknown]
